FAERS Safety Report 4606368-5 (Version None)
Quarter: 2005Q2

REPORT INFORMATION
  Report Type: 
  Country: None (occurrence: None)
  Receive Date: 20050303
  Receipt Date: 20050118
  Transmission Date: 20051028
  Serious: No
  Sender: FDA-Public Use
  Company Number: 200510082BWH

PATIENT
  Age: 74 Year
  Sex: Male
  Weight: 82.5547 kg

DRUGS (6)
  1. LEVITRA [Suspect]
     Indication: ERECTILE DYSFUNCTION
     Dosage: 10 MG, TOTAL DAILY, ORAL
     Route: 048
     Dates: start: 20050117
  2. VIAGRA [Concomitant]
  3. MOBIC [Concomitant]
  4. MAVIK [Concomitant]
  5. MECLIZINE [Concomitant]
  6. TYLENOL COLD [Concomitant]

REACTIONS (3)
  - ABDOMINAL PAIN UPPER [None]
  - DIZZINESS [None]
  - STOMACH DISCOMFORT [None]
